FAERS Safety Report 23377789 (Version 1)
Quarter: 2024Q1

REPORT INFORMATION
  Report Type: Spontaneous
  Country: CN (occurrence: CN)
  Receive Date: 20240108
  Receipt Date: 20240108
  Transmission Date: 20240410
  Serious: Yes (Other)
  Sender: FDA-Public Use
  Company Number: CN-BAYER-2024A002331

PATIENT
  Age: 76 Year
  Sex: Female
  Weight: 56 kg

DRUGS (1)
  1. AVELOX [Suspect]
     Active Substance: MOXIFLOXACIN HYDROCHLORIDE
     Indication: Urinary tract infection
     Dosage: 0.4 G, QD
     Route: 048
     Dates: start: 20231212, end: 20231214

REACTIONS (4)
  - Delirium [Recovered/Resolved]
  - Dysphoria [Recovered/Resolved]
  - Disorganised speech [Recovered/Resolved]
  - Off label use [None]

NARRATIVE: CASE EVENT DATE: 20231212
